FAERS Safety Report 14683626 (Version 2)
Quarter: 2019Q1

REPORT INFORMATION
  Report Type: Spontaneous
  Country: US (occurrence: US)
  Receive Date: 20180327
  Receipt Date: 20190226
  Transmission Date: 20190417
  Serious: No
  Sender: FDA-Public Use
  Company Number: US-PFIZER INC-2018126347

PATIENT
  Age: 71 Year
  Sex: Male

DRUGS (1)
  1. DAYPRO [Suspect]
     Active Substance: OXAPROZIN
     Dosage: UNK

REACTIONS (5)
  - Dizziness [Unknown]
  - Drug hypersensitivity [Unknown]
  - Skin disorder [Unknown]
  - Feeling hot [Unknown]
  - Pruritus [Unknown]
